FAERS Safety Report 4648634-3 (Version None)
Quarter: 2005Q2

REPORT INFORMATION
  Report Type: 
  Country: None (occurrence: None)
  Receive Date: 20050427
  Receipt Date: 20050414
  Transmission Date: 20051028
  Serious: Yes (Hospitalization, Other)
  Sender: FDA-Public Use
  Company Number: 2005052118

PATIENT
  Age: 38 Year
  Sex: Female

DRUGS (4)
  1. SULFASALAZINE [Suspect]
     Indication: COLITIS ULCERATIVE
     Dosage: ORAL
     Route: 048
     Dates: start: 20050107, end: 20050203
  2. MESALAMINE [Suspect]
     Indication: COLITIS ULCERATIVE
     Dosage: 6 TABLETS (1 D), ORAL
     Route: 048
     Dates: start: 20041209, end: 20050106
  3. PREDNISONE [Concomitant]
  4. SAIREL-TO (HERBAL EXTRACTS NOS) [Concomitant]

REACTIONS (9)
  - ABNORMAL FAECES [None]
  - ANOREXIA [None]
  - COLITIS ULCERATIVE [None]
  - CONDITION AGGRAVATED [None]
  - DRUG INEFFECTIVE [None]
  - HAEMATOCHEZIA [None]
  - MALAISE [None]
  - NAUSEA [None]
  - PYREXIA [None]
